FAERS Safety Report 17566809 (Version 1)
Quarter: 2020Q1

REPORT INFORMATION
  Report Type: Spontaneous
  Country: US (occurrence: US)
  Receive Date: 20200320
  Receipt Date: 20200320
  Transmission Date: 20200409
  Serious: No
  Sender: FDA-Public Use
  Company Number: US-TEVA-2020-US-1199794

PATIENT
  Sex: Female

DRUGS (1)
  1. AJOVY [Suspect]
     Active Substance: FREMANEZUMAB-VFRM
     Route: 065

REACTIONS (5)
  - Weight increased [Unknown]
  - Frustration tolerance decreased [Unknown]
  - Hypersensitivity [Unknown]
  - Alopecia [Unknown]
  - Rash pruritic [Not Recovered/Not Resolved]
